FAERS Safety Report 4547969-2 (Version None)
Quarter: 2004Q4

REPORT INFORMATION
  Report Type: 
  Country: None (occurrence: None)
  Receive Date: 20041220
  Receipt Date: 20041019
  Transmission Date: 20050328
  Serious: Yes (Death, Hospitalization, Other)
  Sender: FDA-Public Use
  Company Number: USA041081607

PATIENT
  Age: 78 Year
  Sex: Male

DRUGS (2)
  1. HUMULIN N [Suspect]
  2. HUMULIN R [Suspect]

REACTIONS (6)
  - ATRIAL FIBRILLATION [None]
  - BLOOD GLUCOSE DECREASED [None]
  - BLOOD GLUCOSE INCREASED [None]
  - DYSPHAGIA [None]
  - PANCREATIC CARCINOMA [None]
  - PNEUMONIA ASPIRATION [None]
